FAERS Safety Report 7785364-3 (Version None)
Quarter: 2011Q3

REPORT INFORMATION
  Report Type: 
  Country: None (occurrence: None)
  Receive Date: 20110929
  Receipt Date: 20110923
  Transmission Date: 20111222
  Serious: No
  Sender: FDA-Public Use
  Company Number: US-PFIZER INC-2011192558

PATIENT
  Sex: Female

DRUGS (2)
  1. LATANOPROST [Suspect]
     Indication: GLAUCOMA
     Dosage: 2.5 UG, UNK
     Dates: start: 20110101
  2. XALATAN [Suspect]
     Indication: GLAUCOMA
     Dosage: UNK

REACTIONS (4)
  - ERYTHEMA OF EYELID [None]
  - ERYTHEMA [None]
  - OCULAR HYPERAEMIA [None]
  - BURNING SENSATION [None]
